FAERS Safety Report 11331924 (Version 1)
Quarter: 2015Q3

REPORT INFORMATION
  Report Type: Spontaneous
  Country: US (occurrence: US)
  Receive Date: 20150803
  Receipt Date: 20150803
  Transmission Date: 20151125
  Serious: No
  Sender: FDA-Public Use
  Company Number: US-ELI_LILLY_AND_COMPANY-US200805005499

PATIENT
  Sex: Female

DRUGS (2)
  1. ZYPREXA [Suspect]
     Active Substance: OLANZAPINE
     Indication: HEADACHE
     Dosage: 1.25 MG, UNK
  2. ZYPREXA [Suspect]
     Active Substance: OLANZAPINE
     Dosage: 0.625 MG, UNK
     Dates: start: 20080507

REACTIONS (3)
  - Increased appetite [Unknown]
  - Blood oestrogen increased [Unknown]
  - Breast enlargement [Unknown]
